FAERS Safety Report 10214604 (Version 1)
Quarter: 2014Q2

REPORT INFORMATION
  Report Type: Report from Study
  Country: US (occurrence: US)
  Receive Date: 20140603
  Receipt Date: 20140603
  Transmission Date: 20141212
  Serious: Yes (Death)
  Sender: FDA-Public Use
  Company Number: US-GLAXOSMITHKLINE-B0998626A

PATIENT
  Age: 28 Year
  Sex: Female

DRUGS (1)
  1. PAZOPANIB [Suspect]
     Indication: MEDULLARY THYROID CANCER
     Dosage: 800MG PER DAY
     Route: 048

REACTIONS (3)
  - Sepsis [Fatal]
  - Enteritis [Unknown]
  - Colitis [Unknown]
